FAERS Safety Report 7531290-4 (Version None)
Quarter: 2011Q2

REPORT INFORMATION
  Report Type: 
  Country: None (occurrence: None)
  Receive Date: 20110608
  Receipt Date: 20110603
  Transmission Date: 20111010
  Serious: Yes (Life-Threatening, Hospitalization, Other)
  Sender: FDA-Public Use
  Company Number: US-ASTRAZENECA-2011SE34463

PATIENT
  Age: 60 Year
  Sex: Female

DRUGS (2)
  1. NEXIUM [Suspect]
     Route: 048
  2. PRILOSEC [Concomitant]
     Route: 048

REACTIONS (6)
  - ENDOSCOPY [None]
  - COLONOSCOPY [None]
  - CARDIAC ARREST [None]
  - TRANSIENT ISCHAEMIC ATTACK [None]
  - POLYPECTOMY [None]
  - CARDIAC FAILURE CONGESTIVE [None]
